FAERS Safety Report 8463033-4 (Version None)
Quarter: 2012Q2

REPORT INFORMATION
  Report Type: 
  Country: None (occurrence: None)
  Receive Date: 20120625
  Receipt Date: 20120615
  Transmission Date: 20120825
  Serious: Yes (Hospitalization, Other)
  Sender: FDA-Public Use
  Company Number: AU-ASTRAZENECA-2011SE66554

PATIENT
  Age: 21260 Day
  Sex: Female
  Weight: 53.8 kg

DRUGS (48)
  1. PIPERACILLIN AND TAZOBACTAM [Concomitant]
     Indication: SEPSIS
     Route: 042
     Dates: start: 20111028, end: 20111030
  2. PROPOFOL [Concomitant]
     Indication: SEDATIVE THERAPY
     Dosage: 0-100 MG DAILY, VARIABLE INFUSION
     Route: 042
     Dates: start: 20111026, end: 20111107
  3. TRACE ELEMENT [Concomitant]
     Indication: ELECTROLYTE SUBSTITUTION THERAPY
     Dosage: 1 VIAL, ONCE DAILY
     Route: 042
     Dates: start: 20111026, end: 20111107
  4. HYDROCORTISONE [Concomitant]
     Route: 042
     Dates: start: 20111030, end: 20111129
  5. CIPROFLOXACIN [Concomitant]
     Route: 042
     Dates: start: 20111109, end: 20111113
  6. ALBUMEX [Concomitant]
     Route: 042
     Dates: start: 20111031, end: 20111031
  7. VANCOMYCIN [Concomitant]
     Indication: SEPSIS
     Route: 042
     Dates: start: 20111026, end: 20111026
  8. MICONAZOLE [Concomitant]
     Indication: PERIPROCTITIS
     Route: 003
     Dates: start: 20111108
  9. POTASSIUM CHLORIDE [Concomitant]
     Indication: ELECTROLYTE SUBSTITUTION THERAPY
     Dosage: 10-30 MMOL, AS REQUIRED
     Route: 042
     Dates: start: 20111028, end: 20111104
  10. HYDROCORTISONE [Concomitant]
     Indication: SEPSIS
     Route: 042
     Dates: start: 20111026, end: 20111028
  11. MIDAZOLAM [Concomitant]
     Indication: SEDATIVE THERAPY
     Dosage: 0.5-15 MG INFUSION, DAILY
     Route: 042
     Dates: start: 20111025, end: 20111026
  12. MIDAZOLAM [Concomitant]
     Route: 042
     Dates: start: 20111025, end: 20111026
  13. PLATELETS [Concomitant]
     Route: 042
     Dates: start: 20111028, end: 20111028
  14. ALBUMEX [Concomitant]
     Indication: ESCHERICHIA SEPSIS
     Route: 042
     Dates: start: 20111028, end: 20111028
  15. MAGNESIUM SULFATE [Concomitant]
     Indication: ELECTROLYTE SUBSTITUTION THERAPY
     Dosage: 10-20 MMOL AS REQUIRED
     Route: 042
     Dates: start: 20111026, end: 20111111
  16. HEPARIN [Concomitant]
     Indication: DEEP VEIN THROMBOSIS
     Route: 058
     Dates: start: 20111002, end: 20111109
  17. ROCURONIUM BROMIDE [Concomitant]
     Indication: MUSCLE RELAXANT THERAPY
     Route: 042
     Dates: start: 20111026, end: 20111026
  18. MIDAZOLAM [Concomitant]
     Indication: SEDATION
     Dosage: 0.5-15 MG INFUSION, DAILY
     Route: 042
     Dates: start: 20111025, end: 20111026
  19. MEROPENEM [Suspect]
     Indication: PNEUMONIA
     Dosage: CONTINUOUS INFUSION
     Route: 042
     Dates: start: 20111026, end: 20111028
  20. FROSEMIDE [Concomitant]
     Indication: RENAL FAILURE ACUTE
     Dosage: 40-80 MG AS REQUIRED
     Route: 042
     Dates: start: 20111105
  21. DEXTROSE 50% [Concomitant]
     Indication: HYPOGLYCAEMIA
     Route: 042
     Dates: start: 20111026, end: 20111109
  22. ERYTHROMYCIN [Concomitant]
     Indication: IMPAIRED GASTRIC EMPTYING
     Route: 042
     Dates: start: 20111027, end: 20111103
  23. MIDAZOLAM [Concomitant]
     Route: 042
     Dates: start: 20111025, end: 20111026
  24. FENTANYL [Concomitant]
     Indication: PAIN
     Dosage: 100-1000 MCG, VARIABLE INFUSION
     Route: 042
     Dates: start: 20111025, end: 20111027
  25. CIPROFLOXACIN [Concomitant]
     Indication: ESCHERICHIA SEPSIS
     Route: 042
     Dates: start: 20111031, end: 20111108
  26. THIAMINE [Concomitant]
     Indication: ALCOHOL ABUSE
     Route: 042
     Dates: start: 20111026, end: 20111107
  27. VITAMIN K TAB [Concomitant]
     Indication: SEPSIS
     Route: 042
     Dates: start: 20111026, end: 20111107
  28. PANTROPRAZOLE [Concomitant]
     Indication: GASTRIC ULCER
     Route: 042
     Dates: start: 20111026, end: 20111108
  29. SLOW-K [Concomitant]
     Indication: ELECTROLYTE SUBSTITUTION THERAPY
     Route: 048
     Dates: start: 20111109, end: 20111111
  30. PLATELETS [Concomitant]
     Indication: ESCHERICHIA SEPSIS
     Route: 042
     Dates: start: 20111026, end: 20111026
  31. MEROPENEM [Suspect]
     Indication: MULTI-ORGAN FAILURE
     Dosage: CONTINUOUS INFUSION
     Route: 042
     Dates: start: 20111026, end: 20111028
  32. VANCOMYCIN [Concomitant]
     Indication: STAPHYLOCOCCAL INFECTION
     Route: 042
     Dates: start: 20111026, end: 20111026
  33. VANCOMYCIN [Concomitant]
     Dosage: CONTINUOUS INFUSION
     Route: 042
     Dates: start: 20111027, end: 20111028
  34. VANCOMYCIN [Concomitant]
     Dosage: CONTINUOUS INFUSION
     Route: 042
     Dates: start: 20111027, end: 20111028
  35. CEFTRIAXONE [Concomitant]
     Indication: SEPSIS
     Route: 042
     Dates: start: 20111025, end: 20111026
  36. MULTI-VITAMIN [Concomitant]
     Indication: ELECTROLYTE SUBSTITUTION THERAPY
     Route: 048
     Dates: start: 20111026, end: 20111107
  37. PLASMA [Concomitant]
     Indication: ESCHERICHIA SEPSIS
     Route: 042
     Dates: start: 20111026, end: 20111026
  38. PLASMA [Concomitant]
     Route: 042
     Dates: start: 20111026, end: 20111026
  39. ALBUMEX [Concomitant]
     Route: 042
     Dates: start: 20111031, end: 20111031
  40. AZD9773 CODE NOT BROKEN [Concomitant]
     Indication: SEPSIS
     Dosage: BID
     Route: 042
     Dates: start: 20111026, end: 20111030
  41. AZITHROMYCIN [Concomitant]
     Indication: SEPSIS
     Route: 042
     Dates: start: 20111025, end: 20111026
  42. K-ACETATE [Concomitant]
     Indication: ELECTROLYTE SUBSTITUTION THERAPY
     Route: 042
     Dates: start: 20111111, end: 20111113
  43. PIPERACILLIN AND TAZOBACTAM [Concomitant]
     Route: 042
     Dates: start: 20111114, end: 20111121
  44. METOCLOPRAMIDE [Concomitant]
     Indication: IMPAIRED GASTRIC EMPTYING
     Route: 042
     Dates: start: 20111026, end: 20111103
  45. POTASSIUM DIHYDROGEN PHOSPHATE [Concomitant]
     Indication: ELECTROLYTE SUBSTITUTION THERAPY
     Route: 042
     Dates: start: 20111026, end: 20111026
  46. SODIUM BICARBONATE [Concomitant]
     Indication: SEPSIS
     Route: 042
     Dates: start: 20111026, end: 20111026
  47. AMIODARONE HCL [Concomitant]
     Indication: ARRHYTHMIA
     Route: 042
     Dates: start: 20111026, end: 20111026
  48. VENTOLIN [Concomitant]
     Indication: ACUTE RESPIRATORY DISTRESS SYNDROME
     Dosage: 4 PUFFS QID
     Route: 055
     Dates: start: 20111030, end: 20111101

REACTIONS (3)
  - LIVER FUNCTION TEST ABNORMAL [None]
  - GASTROINTESTINAL HAEMORRHAGE [None]
  - HEPATIC INFECTION FUNGAL [None]
